FAERS Safety Report 9646671 (Version 2)
Quarter: 2013Q4

REPORT INFORMATION
  Report Type: Spontaneous
  Country: FR (occurrence: FR)
  Receive Date: 20131026
  Receipt Date: 20131026
  Transmission Date: 20140711
  Serious: Yes (Other)
  Sender: FDA-Public Use
  Company Number: FR-BRISTOL-MYERS SQUIBB COMPANY-19192715

PATIENT
  Age: 77 Year
  Sex: Male

DRUGS (6)
  1. HYDREA [Suspect]
     Indication: THROMBOCYTOPENIA
     Route: 048
     Dates: start: 20130812, end: 20130812
  2. DUOPLAVIN [Concomitant]
  3. TRIATEC [Concomitant]
  4. RANITIDINE [Concomitant]
  5. SMECTA [Concomitant]
  6. IMMOVANE [Concomitant]

REACTIONS (7)
  - Colitis [Unknown]
  - Oral discomfort [Unknown]
  - Nasal congestion [Unknown]
  - Rhinorrhoea [Unknown]
  - Gastrointestinal disorder [Unknown]
  - Eructation [Unknown]
  - Off label use [Unknown]
